FAERS Safety Report 10560309 (Version 1)
Quarter: 2014Q4

REPORT INFORMATION
  Report Type: Spontaneous
  Country: US (occurrence: None)
  Receive Date: 20141031
  Receipt Date: 20141031
  Transmission Date: 20150529
  Serious: Yes (Other)
  Sender: FDA-Public Use
  Company Number: None

PATIENT
  Age: 60 Year
  Sex: Female

DRUGS (1)
  1. INVEGA SUSTENNA [Suspect]
     Active Substance: PALIPERIDONE PALMITATE
     Indication: PSYCHOTIC DISORDER
     Dosage: 156MG, EVERY 4 WEEKS, INTRAMUSCULAR?
     Route: 030

REACTIONS (4)
  - Fatigue [None]
  - Asthenia [None]
  - Dyspnoea [None]
  - Epistaxis [None]

NARRATIVE: CASE EVENT DATE: 20141030
